FAERS Safety Report 6354579-3 (Version None)
Quarter: 2009Q3

REPORT INFORMATION
  Report Type: 
  Country: None (occurrence: None)
  Receive Date: 20090914
  Receipt Date: 20090901
  Transmission Date: 20100115
  Serious: Yes (Other)
  Sender: FDA-Public Use
  Company Number: GB-ELI_LILLY_AND_COMPANY-GB200907004995

PATIENT
  Age: 57 Year
  Sex: Female
  Weight: 61 kg

DRUGS (10)
  1. ALIMTA [Suspect]
     Indication: NON-SMALL CELL LUNG CANCER
     Dosage: 975 MG, UNKNOWN
     Route: 042
     Dates: start: 20090310
  2. ALIMTA [Suspect]
     Dosage: 825 MG, UNKNOWN
     Route: 042
     Dates: start: 20090605, end: 20090605
  3. FOLIC ACID [Concomitant]
     Indication: PREMEDICATION
     Dosage: 40 MG, UNKNOWN
     Route: 048
     Dates: start: 20090529, end: 20090713
  4. VITAMIN B-12 [Concomitant]
     Indication: PREMEDICATION
     Dosage: UNK, UNKNOWN
     Route: 030
     Dates: start: 20090303, end: 20090101
  5. VITAMIN B-12 [Concomitant]
     Dosage: 1 MG, UNKNOWN
     Route: 030
     Dates: start: 20090529, end: 20090713
  6. DEXAMETHASONE [Concomitant]
     Indication: PREMEDICATION
     Dosage: 8 MG, UNKNOWN
     Route: 048
     Dates: start: 20090625, end: 20090713
  7. ONDANSETRON [Concomitant]
     Indication: VOMITING
     Dosage: UNK, UNKNOWN
     Route: 065
  8. ASPIRIN [Concomitant]
     Dosage: UNK, UNKNOWN
     Route: 065
     Dates: end: 20090306
  9. AMITRIPTYLINE [Concomitant]
     Indication: PAIN
     Dosage: 20 MG, UNKNOWN
     Route: 048
  10. CO CODAMOL [Concomitant]
     Indication: PAIN
     Dosage: 8/500, AS NEEDED
     Route: 048

REACTIONS (5)
  - ALANINE AMINOTRANSFERASE INCREASED [None]
  - ASPARTATE AMINOTRANSFERASE INCREASED [None]
  - BLOOD ALKALINE PHOSPHATASE INCREASED [None]
  - GAMMA-GLUTAMYLTRANSFERASE INCREASED [None]
  - LETHARGY [None]
